FAERS Safety Report 10058350 (Version 1)
Quarter: 2014Q2

REPORT INFORMATION
  Report Type: Spontaneous
  Country: GB (occurrence: GB)
  Receive Date: 20140404
  Receipt Date: 20140404
  Transmission Date: 20141212
  Serious: Yes (Disabling)
  Sender: FDA-Public Use
  Company Number: GB-ROCHE-1374821

PATIENT
  Age: 45 Year
  Sex: Female
  Weight: 81 kg

DRUGS (3)
  1. HERCEPTIN [Suspect]
     Indication: BREAST CANCER
     Dosage: 1- 8 CYCLES GIVEN
     Route: 042
  2. HERCEPTIN [Suspect]
     Dosage: CYCLE 9 ONWARDS
     Route: 058
  3. TAMOXIFEN [Concomitant]
     Route: 065

REACTIONS (2)
  - Arthralgia [Recovering/Resolving]
  - Mass [Recovering/Resolving]
